FAERS Safety Report 8818075 (Version 1)
Quarter: 2012Q4

REPORT INFORMATION
  Report Type: 
  Country: US (occurrence: US)
  Receive Date: 20121001
  Receipt Date: 20121001
  Transmission Date: 20130627
  Serious: No
  Sender: FDA-Public Use
  Company Number: US-B.I. PHARMACEUTICALS,INC./RIDGEFIELD-2012-BP-23526BP

PATIENT
  Age: 63 Year
  Sex: Male

DRUGS (5)
  1. PRADAXA [Suspect]
     Indication: ATRIAL FIBRILLATION
     Dosage: 300 mg
     Route: 048
     Dates: start: 201111, end: 20120925
  2. DIGOXIN [Concomitant]
     Indication: CARDIAC DISORDER
     Dosage: 125 mcg
     Route: 048
     Dates: start: 201111
  3. DILTIAZEM [Concomitant]
     Indication: CARDIAC DISORDER
     Dosage: 80 mg
     Route: 048
     Dates: start: 201111
  4. METOPROLOL [Concomitant]
     Indication: HYPERTENSION
     Dosage: 100 mg
     Route: 048
  5. PRAVASTATIN [Concomitant]
     Indication: BLOOD CHOLESTEROL INCREASED
     Dosage: 40 mg
     Route: 048

REACTIONS (1)
  - Tooth fracture [Not Recovered/Not Resolved]
